FAERS Safety Report 8778299 (Version 1)
Quarter: 2012Q4

REPORT INFORMATION
  Report Type: 
  Country: US (occurrence: US)
  Receive Date: 20120911
  Receipt Date: 20120911
  Transmission Date: 20130627
  Serious: Yes (Death, Other)
  Sender: FDA-Public Use
  Company Number: US-009507513-1012USA01385

PATIENT

DRUGS (16)
  1. ISENTRESS [Suspect]
     Dosage: 800 mg, qd
     Route: 048
  2. SINGULAIR [Concomitant]
     Route: 048
  3. SELZENTRY [Suspect]
     Dosage: 600 mg, qd
     Route: 048
  4. INTELENCE [Suspect]
     Dosage: 400 mg, qd
  5. TRUVADA [Suspect]
     Dosage: 1 DF, qd
     Route: 048
  6. LANTUS [Concomitant]
     Route: 058
  7. LEXAPRO [Concomitant]
     Route: 048
  8. XANAX [Concomitant]
     Route: 048
  9. VICODIN [Concomitant]
     Route: 048
  10. DOC TRAZODONE [Concomitant]
     Route: 048
  11. ALBUTEROL [Concomitant]
     Route: 055
  12. PREVACID [Concomitant]
     Route: 048
  13. BENTYL [Concomitant]
     Route: 048
  14. CYANOCOBALAMIN [Concomitant]
     Route: 030
  15. STARLIX [Concomitant]
     Route: 048
  16. BACTRIM DS [Concomitant]
     Route: 048

REACTIONS (1)
  - Pancreatic carcinoma [Fatal]
